FAERS Safety Report 13465576 (Version 1)
Quarter: 2017Q2

REPORT INFORMATION
  Report Type: Spontaneous
  Country: US (occurrence: US)
  Receive Date: 20170420
  Receipt Date: 20170420
  Transmission Date: 20170830
  Serious: Yes (Other)
  Sender: FDA-Public Use
  Company Number: None

PATIENT
  Age: 49 Year
  Sex: Female

DRUGS (1)
  1. REMICADE [Suspect]
     Active Substance: INFLIXIMAB
     Indication: RHEUMATOID ARTHRITIS
     Dosage: 200MG EVERY 8 WEEKS IV
     Route: 042
     Dates: start: 20161120, end: 20170316

REACTIONS (5)
  - Chest discomfort [None]
  - Flushing [None]
  - Feeling abnormal [None]
  - Anaphylactic reaction [None]
  - Nausea [None]

NARRATIVE: CASE EVENT DATE: 20170316
